FAERS Safety Report 7955164-X (Version None)
Quarter: 2011Q4

REPORT INFORMATION
  Report Type: 
  Country: None (occurrence: None)
  Receive Date: 20111202
  Receipt Date: 20111118
  Transmission Date: 20120403
  Serious: Yes (Life-Threatening, Hospitalization)
  Sender: FDA-Public Use
  Company Number: FR-EISAI INC-E3810-05106-SPO-FR

PATIENT
  Sex: Male

DRUGS (8)
  1. AMARYL [Concomitant]
     Dosage: UNKNOWN
     Route: 065
  2. RABEPRAZOLE SODIUM [Suspect]
     Route: 048
     Dates: start: 20111026, end: 20111026
  3. CORDARONE [Concomitant]
     Dosage: UNKNOWN
     Route: 065
  4. PREVISCAN [Concomitant]
     Dosage: UNKNOWN
     Route: 065
  5. ASPIRIN [Concomitant]
     Dosage: UNKNOWN
     Route: 065
  6. IRBESARTAN [Concomitant]
     Dosage: UNKNOWN
     Route: 065
  7. GLUCOPHAGE [Concomitant]
     Dosage: UNKNOWN
     Route: 065
  8. ATORVASTATIN CALCIUM [Concomitant]
     Dosage: UNKNOWN
     Route: 065

REACTIONS (4)
  - LOSS OF CONSCIOUSNESS [None]
  - ANAPHYLACTIC SHOCK [None]
  - URTICARIA [None]
  - PRURITUS [None]
